FAERS Safety Report 8671351 (Version 2)
Quarter: 2012Q4

REPORT INFORMATION
  Report Type: 
  Country: IE (occurrence: IE)
  Receive Date: 20120718
  Receipt Date: 20120831
  Transmission Date: 20130627
  Serious: Yes (Hospitalization, Other)
  Sender: FDA-Public Use
  Company Number: PHFR2012IE004009

PATIENT
  Age: 29 Year
  Sex: Male
  Weight: 103 kg

DRUGS (9)
  1. CLOZARIL [Suspect]
     Indication: SCHIZOPHRENIA
     Route: 048
     Dates: start: 20090714
  2. CLOZARIL [Suspect]
     Dosage: 550 mg
     Route: 048
     Dates: start: 20090715
  3. PROCYCLIDINE [Concomitant]
  4. LAMOTRIGINE [Concomitant]
     Indication: CONVULSION
     Dosage: 250 mg, UNK
     Route: 048
     Dates: start: 201001
  5. BISOPROLOL [Concomitant]
     Indication: TACHYCARDIA
     Dosage: 3.75 mg, UNK
     Route: 048
     Dates: start: 200806
  6. ZOTON [Concomitant]
     Indication: DYSPEPSIA
     Dosage: 15 mg, UNK
     Route: 048
  7. EZETROL [Concomitant]
     Indication: BLOOD CHOLESTEROL INCREASED
     Dosage: 10 mg, UNK
     Route: 048
  8. ROSUVASTATIN [Concomitant]
     Indication: BLOOD CHOLESTEROL INCREASED
     Dosage: 5 mg, UNK
     Route: 048
  9. ESCITALOPRAM [Concomitant]
     Indication: DEPRESSED MOOD
     Dosage: 20 mg, UNK
     Dates: start: 201205

REACTIONS (1)
  - VIIth nerve paralysis [Recovered/Resolved]
